FAERS Safety Report 9407073 (Version 1)
Quarter: 2013Q3

REPORT INFORMATION
  Report Type: Spontaneous
  Country: FR (occurrence: FR)
  Receive Date: 20130718
  Receipt Date: 20130718
  Transmission Date: 20140515
  Serious: Yes (Life-Threatening, Hospitalization)
  Sender: FDA-Public Use
  Company Number: FR-ROCHE-1249799

PATIENT
  Age: 91 Year
  Sex: Female
  Weight: 45 kg

DRUGS (1)
  1. ROCEPHINE [Suspect]
     Indication: URINARY TRACT INFECTION
     Dosage: ONE SINGLE DOSE
     Route: 042
     Dates: start: 20130623, end: 20130623

REACTIONS (3)
  - Convulsion [Recovered/Resolved]
  - Generalised erythema [Recovered/Resolved]
  - Tachycardia [Recovered/Resolved]
